FAERS Safety Report 9742683 (Version 2)
Quarter: 2015Q3

REPORT INFORMATION
  Report Type: Spontaneous
  Country: US (occurrence: US)
  Receive Date: 20131210
  Receipt Date: 20150804
  Transmission Date: 20151125
  Serious: No
  Sender: FDA-Public Use
  Company Number: US-GILEAD-2009-0025371

PATIENT
  Age: 60 Year
  Sex: Female
  Weight: 78.47 kg

DRUGS (16)
  1. NORVASC [Concomitant]
     Active Substance: AMLODIPINE BESYLATE
  2. ZEMPLAR [Concomitant]
     Active Substance: PARICALCITOL
  3. METOPROLOL [Concomitant]
     Active Substance: METOPROLOL
  4. NEXIUM [Concomitant]
     Active Substance: ESOMEPRAZOLE MAGNESIUM
  5. PLAVIX [Concomitant]
     Active Substance: CLOPIDOGREL BISULFATE
  6. LETAIRIS [Suspect]
     Active Substance: AMBRISENTAN
     Indication: PULMONARY ARTERIAL HYPERTENSION
     Route: 048
     Dates: start: 20081027
  7. LASIX [Concomitant]
     Active Substance: FUROSEMIDE
  8. OSCAL [Concomitant]
     Active Substance: CALCIUM CARBONATE
  9. KLOR-CON M20 [Concomitant]
     Active Substance: POTASSIUM CHLORIDE
  10. COREG [Concomitant]
     Active Substance: CARVEDILOL
  11. COZAAR [Concomitant]
     Active Substance: LOSARTAN POTASSIUM
  12. HYDRALAZINE [Concomitant]
     Active Substance: HYDRALAZINE HYDROCHLORIDE
  13. ASPIRIN. [Concomitant]
     Active Substance: ASPIRIN
  14. ISOSORBIDE MN [Concomitant]
     Active Substance: ISOSORBIDE MONONITRATE
  15. VYTORIN 10-20 [Concomitant]
  16. CLONIDINE HCL [Concomitant]
     Active Substance: CLONIDINE HYDROCHLORIDE

REACTIONS (1)
  - Nasal congestion [Unknown]
